FAERS Safety Report 20005280 (Version 1)
Quarter: 2021Q4

REPORT INFORMATION
  Report Type: Spontaneous
  Country: US (occurrence: US)
  Receive Date: 20211028
  Receipt Date: 20211028
  Transmission Date: 20220303
  Serious: Yes (unspecified)
  Sender: FDA-Public Use
  Company Number: None

PATIENT
  Age: 39 Year
  Sex: Female
  Weight: 59.3 kg

DRUGS (1)
  1. TRASTUZUMAB [Suspect]
     Active Substance: TRASTUZUMAB
     Indication: Breast cancer
     Dosage: ?          OTHER FREQUENCY:ONE TIME INFUSION;
     Route: 041
     Dates: start: 20211027, end: 20211027

REACTIONS (3)
  - Dizziness [None]
  - Palpitations [None]
  - Confusional state [None]

NARRATIVE: CASE EVENT DATE: 20211027
